FAERS Safety Report 11438889 (Version 3)
Quarter: 2016Q2

REPORT INFORMATION
  Report Type: Report from Study
  Country: US (occurrence: US)
  Receive Date: 20150901
  Receipt Date: 20160609
  Transmission Date: 20160815
  Serious: No
  Sender: FDA-Public Use
  Company Number: PHEH2014US025642

PATIENT
  Sex: Female

DRUGS (1)
  1. GILENYA [Suspect]
     Active Substance: FINGOLIMOD HYDROCHLORIDE
     Indication: EXPOSURE VIA PARTNER
     Dosage: FETAL DRUG EXPOSURE VIA FATHER
     Route: 050

REACTIONS (2)
  - Exposure via father [Unknown]
  - Normal newborn [Unknown]
